FAERS Safety Report 5442697-3 (Version None)
Quarter: 2007Q3

REPORT INFORMATION
  Report Type: 
  Country: None (occurrence: None)
  Receive Date: 20070904
  Receipt Date: 20070829
  Transmission Date: 20080115
  Serious: Yes (Disabling)
  Sender: FDA-Public Use
  Company Number: AU-MERCK-0708AUS00300

PATIENT
  Age: 67 Year
  Sex: Female
  Weight: 95 kg

DRUGS (3)
  1. VYTORIN [Suspect]
     Indication: METABOLIC DISORDER
     Route: 048
     Dates: start: 20061002, end: 20061101
  2. VYTORIN [Suspect]
     Route: 048
     Dates: start: 20061114, end: 20070105
  3. WARFARIN SODIUM [Suspect]
     Route: 048
     Dates: start: 19960901

REACTIONS (5)
  - INTERNATIONAL NORMALISED RATIO INCREASED [None]
  - MOOD ALTERED [None]
  - MUSCLE SPASMS [None]
  - MUSCULAR WEAKNESS [None]
  - PAIN IN EXTREMITY [None]
